FAERS Safety Report 7368563-4 (Version None)
Quarter: 2011Q1

REPORT INFORMATION
  Report Type: 
  Country: None (occurrence: None)
  Receive Date: 20110304
  Receipt Date: 20110222
  Transmission Date: 20110831
  Serious: Yes (Life-Threatening, Hospitalization)
  Sender: FDA-Public Use
  Company Number: 2011SP008367

PATIENT
  Age: 78 Year
  Sex: Female

DRUGS (12)
  1. FLAGYL [Suspect]
     Indication: PRODUCT USED FOR UNKNOWN INDICATION
     Dosage: 500 MG; TID; PO
     Route: 048
     Dates: start: 20101220, end: 20101230
  2. TOPAMAX [Concomitant]
  3. DISTRANEURIN [Concomitant]
  4. PERENTEROL /0083001/ [Concomitant]
  5. DAFALGAN [Concomitant]
  6. ASPIRIN [Concomitant]
  7. COUMADIN [Suspect]
     Indication: ANTICOAGULANT THERAPY
     Dosage: 50 MG; QS
     Dates: start: 19950101, end: 20101201
  8. REMERON [Suspect]
     Indication: PRODUCT USED FOR UNKNOWN INDICATION
     Dosage: 45 MG; PO
     Route: 048
     Dates: end: 20101201
  9. SINTROM [Suspect]
     Indication: ANTICOAGULANT THERAPY
     Dosage: 2 MG; PRN
     Dates: start: 20101213, end: 20101222
  10. KEPPRA [Concomitant]
  11. RISPERDAL [Concomitant]
  12. LIQUEMINE (HEPARIN SODIUM /00027704/) [Suspect]
     Indication: ANTICOAGULANT THERAPY
     Dosage: 17000 IU; QD; INDRP
     Route: 041
     Dates: start: 20101208, end: 20101223

REACTIONS (6)
  - CLOSTRIDIUM TEST POSITIVE [None]
  - DRUG LEVEL INCREASED [None]
  - GRAND MAL CONVULSION [None]
  - SUBDURAL HAEMATOMA [None]
  - DRUG INTERACTION [None]
  - TRAUMATIC INTRACRANIAL HAEMORRHAGE [None]
